FAERS Safety Report 16196316 (Version 1)
Quarter: 2019Q2

REPORT INFORMATION
  Report Type: Spontaneous
  Country: IT (occurrence: IT)
  Receive Date: 20190415
  Receipt Date: 20190415
  Transmission Date: 20190711
  Serious: Yes (Other)
  Sender: FDA-Public Use
  Company Number: IT-SA-2019SA103188

PATIENT
  Age: 42 Year
  Sex: Female

DRUGS (1)
  1. ALEMTUZUMAB [Suspect]
     Active Substance: ALEMTUZUMAB
     Indication: MULTIPLE SCLEROSIS
     Dosage: 60 MG, YEAR
     Route: 065
     Dates: start: 20181214, end: 20181218

REACTIONS (2)
  - Rash [Unknown]
  - Eosinophilia [Unknown]

NARRATIVE: CASE EVENT DATE: 20190326
